FAERS Safety Report 5734083-3 (Version None)
Quarter: 2008Q2

REPORT INFORMATION
  Report Type: 
  Country: None (occurrence: None)
  Receive Date: 20080509
  Receipt Date: 20080505
  Transmission Date: 20081010
  Serious: Yes (Life-Threatening, Hospitalization, Other)
  Sender: FDA-Public Use
  Company Number: US-ALLERGAN-0802706US

PATIENT
  Sex: Female
  Weight: 58.957 kg

DRUGS (14)
  1. BOTOX [Suspect]
     Indication: TORTICOLLIS
     Dosage: 600 UNITS, SINGLE
     Route: 030
     Dates: start: 20071029, end: 20071029
  2. BOTOX [Suspect]
     Indication: DYSTONIA
     Dosage: 300 UNITS, SINGLE
     Route: 030
     Dates: start: 20070207, end: 20070207
  3. BOTOX [Suspect]
     Indication: HEADACHE
     Dosage: 200 UNITS, SINGLE
     Route: 030
     Dates: start: 20060703, end: 20060703
  4. BOTOX [Suspect]
     Dosage: 100 UNITS, SINGLE
     Route: 030
     Dates: start: 20060518, end: 20060518
  5. BOTOX [Suspect]
     Dosage: 300 UNITS, SINGLE
     Route: 030
     Dates: start: 20030813, end: 20030813
  6. LYRICA [Concomitant]
     Dates: start: 20071029
  7. IMITREX [Concomitant]
  8. DURAGESIC-100 [Concomitant]
     Dosage: 25 MCG, Q 3 DAYS
     Route: 062
  9. KLONOPIN [Concomitant]
     Indication: INSOMNIA
  10. EFFEXOR [Concomitant]
     Dosage: 300 MG, UNK
  11. PROVIGIL [Concomitant]
     Indication: INSOMNIA
     Dosage: WHEN NOT SLEEP
  12. PROVIGIL [Concomitant]
     Indication: SLEEP DISORDER
  13. LITHIUM CARBONATE [Concomitant]
     Dosage: 200 MG, BID
  14. AMBIEN [Concomitant]
     Indication: INSOMNIA

REACTIONS (3)
  - DYSPNOEA [None]
  - MEDICATION ERROR [None]
  - PNEUMOTHORAX [None]
